FAERS Safety Report 8457076-4 (Version None)
Quarter: 2012Q2

REPORT INFORMATION
  Report Type: 
  Country: None (occurrence: None)
  Receive Date: 20120615
  Receipt Date: 20120607
  Transmission Date: 20120825
  Serious: Yes (Death, Hospitalization, Other)
  Sender: FDA-Public Use
  Company Number: 135215

PATIENT
  Age: 53 Year
  Sex: Male

DRUGS (1)
  1. ACETYLCYSTEINE [Suspect]
     Indication: TOXICITY TO VARIOUS AGENTS
     Dosage: 126,000MG IV
     Route: 042

REACTIONS (8)
  - SUICIDE ATTEMPT [None]
  - PERIORBITAL OEDEMA [None]
  - MEDICATION ERROR [None]
  - MYOCARDIAL INFARCTION [None]
  - OVERDOSE [None]
  - HYPOTENSION [None]
  - RASH [None]
  - ELECTROCARDIOGRAM ST SEGMENT ELEVATION [None]
